FAERS Safety Report 4872756-5 (Version None)
Quarter: 2005Q4

REPORT INFORMATION
  Report Type: 
  Country: None (occurrence: None)
  Receive Date: 20051223
  Receipt Date: 20050131
  Transmission Date: 20060501
  Serious: Yes (Hospitalization)
  Sender: FDA-Public Use
  Company Number: US014640

PATIENT
  Age: 26 Year
  Sex: Female

DRUGS (2)
  1. ACTIQ [Suspect]
  2. DURAGESIC-100 [Suspect]

REACTIONS (1)
  - DRUG DEPENDENCE [None]
